FAERS Safety Report 6472515-6 (Version None)
Quarter: 2009Q4

REPORT INFORMATION
  Report Type: 
  Country: None (occurrence: None)
  Receive Date: 20091203
  Receipt Date: 20081206
  Transmission Date: 20100525
  Serious: No
  Sender: FDA-Public Use
  Company Number: US-AMGEN-KDL322646

PATIENT
  Sex: Female

DRUGS (3)
  1. ENBREL [Suspect]
     Indication: RHEUMATOID ARTHRITIS
     Route: 058
     Dates: start: 20081204
  2. PLAQUENIL [Concomitant]
  3. METHOTREXATE [Concomitant]

REACTIONS (4)
  - COUGH [None]
  - HYPOAESTHESIA ORAL [None]
  - INFLUENZA LIKE ILLNESS [None]
  - PAIN [None]
